FAERS Safety Report 10688256 (Version 2)
Quarter: 2015Q1

REPORT INFORMATION
  Report Type: Report from Study
  Country: US (occurrence: US)
  Receive Date: 20150102
  Receipt Date: 20150102
  Transmission Date: 20150720
  Serious: Yes (Hospitalization)
  Sender: FDA-Public Use
  Company Number: US-SA-2014SA136443

PATIENT
  Age: 45 Year
  Sex: Female

DRUGS (1)
  1. AUBAGIO [Suspect]
     Active Substance: TERIFLUNOMIDE
     Indication: MULTIPLE SCLEROSIS
     Route: 048
     Dates: start: 20140909, end: 20141219

REACTIONS (14)
  - Kidney infection [Recovering/Resolving]
  - Memory impairment [Unknown]
  - White blood cell count decreased [Unknown]
  - Hypotension [Unknown]
  - Vomiting [Unknown]
  - Hypoaesthesia [Unknown]
  - Feeling abnormal [Unknown]
  - Genital rash [Recovering/Resolving]
  - Urinary tract infection [Recovering/Resolving]
  - Dysgeusia [Unknown]
  - Dysphagia [Unknown]
  - Dizziness [Unknown]
  - Swollen tongue [Recovering/Resolving]
  - Asthma [Recovering/Resolving]

NARRATIVE: CASE EVENT DATE: 2014
